FAERS Safety Report 4893040-X (Version None)
Quarter: 2005Q4

REPORT INFORMATION
  Report Type: 
  Country: None (occurrence: None)
  Receive Date: 20051220
  Receipt Date: 20050902
  Transmission Date: 20060501
  Serious: Yes (Other)
  Sender: FDA-Public Use
  Company Number: 416819

PATIENT
  Age: 46 Year
  Sex: Female

DRUGS (1)
  1. BONIVA [Suspect]
     Dosage: ORAL
     Route: 048
     Dates: start: 20050731

REACTIONS (3)
  - ARTHRALGIA [None]
  - MYALGIA [None]
  - SCLERITIS [None]
